FAERS Safety Report 8362188 (Version 3)
Quarter: 2014Q1

REPORT INFORMATION
  Report Type: Spontaneous
  Country: US (occurrence: US)
  Receive Date: 20120130
  Receipt Date: 20140320
  Transmission Date: 20141002
  Serious: Yes (Hospitalization)
  Sender: FDA-Public Use
  Company Number: US-GLAXOSMITHKLINE-A0850544A

PATIENT
  Age: 65 Year
  Sex: Male
  Weight: 100.9 kg

DRUGS (3)
  1. AVANDIA [Suspect]
     Indication: TYPE 2 DIABETES MELLITUS
     Dosage: 8MG PER DAY
     Route: 048
     Dates: start: 20001005, end: 2007
  2. TRAMADOL [Concomitant]
  3. LIPITOR [Concomitant]

REACTIONS (5)
  - Myocardial infarction [Recovering/Resolving]
  - Coronary artery occlusion [Unknown]
  - Cataract [Unknown]
  - Sexual dysfunction [Unknown]
  - Pleural effusion [Unknown]
